FAERS Safety Report 9955233 (Version 2)
Quarter: 2014Q2

REPORT INFORMATION
  Report Type: Spontaneous
  Country: DE (occurrence: DE)
  Receive Date: 20140304
  Receipt Date: 20140428
  Transmission Date: 20141212
  Serious: Yes (Hospitalization)
  Sender: FDA-Public Use
  Company Number: PHHY2014DE025634

PATIENT
  Sex: Female

DRUGS (1)
  1. GILENYA [Suspect]
     Indication: MULTIPLE SCLEROSIS
     Dosage: 0.5 MG, QD
     Route: 048
     Dates: start: 20140123

REACTIONS (6)
  - Abdominal distension [Unknown]
  - Swollen tongue [Unknown]
  - Tongue geographic [Unknown]
  - Speech disorder [Unknown]
  - Dizziness [Unknown]
  - Dyspnoea [Unknown]
